FAERS Safety Report 4783013-X (Version None)
Quarter: 2005Q3

REPORT INFORMATION
  Report Type: 
  Country: None (occurrence: None)
  Receive Date: 20050928
  Receipt Date: 20050928
  Transmission Date: 20060218
  Serious: Yes (Other)
  Sender: FDA-Public Use
  Company Number: None

PATIENT
  Sex: Male
  Weight: 68.0396 kg

DRUGS (1)
  1. NADOLOL [Suspect]
     Indication: ARRHYTHMIA
     Dosage: 20MG 1 TABLET DAILY PO
     Route: 048
     Dates: start: 20050912, end: 20050915

REACTIONS (5)
  - ARRHYTHMIA [None]
  - DRUG EFFECT DECREASED [None]
  - DRUG INEFFECTIVE [None]
  - MEDICATION ERROR [None]
  - PHARMACEUTICAL PRODUCT COMPLAINT [None]
